FAERS Safety Report 20995612 (Version 2)
Quarter: 2022Q3

REPORT INFORMATION
  Report Type: Spontaneous
  Country: GB (occurrence: GB)
  Receive Date: 20220623
  Receipt Date: 20220912
  Transmission Date: 20221027
  Serious: Yes (Other)
  Sender: FDA-Public Use
  Company Number: None

PATIENT
  Age: 50 Year
  Sex: Female
  Weight: 60 kg

DRUGS (19)
  1. ACETAMINOPHEN [Suspect]
     Active Substance: ACETAMINOPHEN
     Indication: Ill-defined disorder
     Route: 065
     Dates: start: 20220505
  2. CODEINE PHOSPHATE [Concomitant]
     Active Substance: CODEINE PHOSPHATE
     Indication: Product used for unknown indication
     Dosage: TAKE ONE TO TWO TABLETS UP TO FOUR TIMES A DAY ...
     Route: 065
     Dates: start: 20220513
  3. CODEINE PHOSPHATE [Concomitant]
     Active Substance: CODEINE PHOSPHATE
     Indication: Ill-defined disorder
  4. DIAZEPAM [Concomitant]
     Active Substance: DIAZEPAM
     Indication: Product used for unknown indication
     Dosage: 1 TO BE TAKEN THREE TIMES DAILY
     Route: 065
     Dates: start: 20211213
  5. DIAZEPAM [Concomitant]
     Active Substance: DIAZEPAM
     Indication: Ill-defined disorder
  6. FERROUS FUMARATE [Concomitant]
     Active Substance: FERROUS FUMARATE
     Indication: Product used for unknown indication
     Dosage: TAKE ONE TWICE A DAY
     Route: 065
     Dates: start: 20211213
  7. FERROUS FUMARATE [Concomitant]
     Active Substance: FERROUS FUMARATE
     Indication: Ill-defined disorder
  8. GABAPENTIN [Concomitant]
     Active Substance: GABAPENTIN
     Indication: Product used for unknown indication
     Dosage: 1 TABLET THREE TIMES A DAY
     Route: 065
     Dates: start: 20211213
  9. GABAPENTIN [Concomitant]
     Active Substance: GABAPENTIN
     Indication: Ill-defined disorder
  10. METHADONE [Concomitant]
     Active Substance: METHADONE HYDROCHLORIDE
     Indication: Product used for unknown indication
     Dosage: 79ML TO BE TAKEN DAILY
     Route: 065
     Dates: start: 20131016
  11. METHADONE [Concomitant]
     Active Substance: METHADONE HYDROCHLORIDE
     Indication: Ill-defined disorder
  12. OMEPRAZOLE [Concomitant]
     Active Substance: OMEPRAZOLE
     Indication: Product used for unknown indication
     Dosage: TAKE ONE DAILY BEFORE FOOD
     Route: 065
     Dates: start: 20211213
  13. OMEPRAZOLE [Concomitant]
     Active Substance: OMEPRAZOLE
     Indication: Ill-defined disorder
  14. TRANEXAMIC ACIDE [Concomitant]
     Indication: Product used for unknown indication
     Dosage: TAKE ONE OR TWO TABLETS 3 TIMES A DAY WHEN NEED...
     Route: 065
     Dates: start: 20211213
  15. TRANEXAMIC ACIDE [Concomitant]
     Indication: Ill-defined disorder
  16. TRAZODONE [Concomitant]
     Active Substance: TRAZODONE HYDROCHLORIDE
     Indication: Product used for unknown indication
     Dosage: 2 NOCTE
     Route: 065
     Dates: start: 20211213
  17. TRAZODONE [Concomitant]
     Active Substance: TRAZODONE HYDROCHLORIDE
     Indication: Ill-defined disorder
  18. ACETAMINOPHEN\CODEINE PHOSPHATE [Concomitant]
     Active Substance: ACETAMINOPHEN\CODEINE PHOSPHATE
     Indication: Product used for unknown indication
     Dosage: TAKE 1 OR 2 4 TIMES/DAY MAXIMUM 8 PER DAY
     Route: 065
     Dates: start: 20211213, end: 20220513
  19. ACETAMINOPHEN\CODEINE PHOSPHATE [Concomitant]
     Active Substance: ACETAMINOPHEN\CODEINE PHOSPHATE
     Indication: Ill-defined disorder

REACTIONS (1)
  - Hepatic failure [Unknown]

NARRATIVE: CASE EVENT DATE: 20220518
